FAERS Safety Report 6405915-0 (Version None)
Quarter: 2009Q4

REPORT INFORMATION
  Report Type: 
  Country: None (occurrence: None)
  Receive Date: 20091014
  Receipt Date: 20090930
  Transmission Date: 20100525
  Serious: Yes (Hospitalization)
  Sender: FDA-Public Use
  Company Number: 2009AC000071

PATIENT
  Sex: Female

DRUGS (14)
  1. DIGOXIN [Suspect]
     Dosage: PO
     Route: 048
  2. SPIRONOLACTONE [Concomitant]
  3. COREG [Concomitant]
  4. LISINOPRIL [Concomitant]
  5. COUMADIN [Concomitant]
  6. HYDROCHLOROTHIAZIDE [Concomitant]
  7. PROPHYLTHIURACIL [Concomitant]
  8. DARVOCET-N 100 [Concomitant]
  9. K-DUR [Concomitant]
  10. MECLIZINE [Concomitant]
  11. TAGAMENT [Concomitant]
  12. ACETAMINOPHEN [Concomitant]
  13. PROPRANOLOL [Concomitant]
  14. PREMPRO [Concomitant]

REACTIONS (23)
  - ACTIVITIES OF DAILY LIVING IMPAIRED [None]
  - ANHEDONIA [None]
  - AORTIC VALVE INCOMPETENCE [None]
  - AORTIC VALVE SCLEROSIS [None]
  - ATRIAL FIBRILLATION [None]
  - CARDIAC ANEURYSM [None]
  - CARDIAC MURMUR [None]
  - CARDIOMYOPATHY [None]
  - DIARRHOEA [None]
  - ECONOMIC PROBLEM [None]
  - ELECTROCARDIOGRAM ST-T SEGMENT DEPRESSION [None]
  - ELECTROCARDIOGRAM T WAVE BIPHASIC [None]
  - EMOTIONAL DISORDER [None]
  - HAEMORRHAGE [None]
  - IMPAIRED WORK ABILITY [None]
  - INTERNATIONAL NORMALISED RATIO INCREASED [None]
  - LEFT VENTRICULAR HYPERTROPHY [None]
  - MENTAL DISORDER [None]
  - MITRAL VALVE INCOMPETENCE [None]
  - MULTIPLE INJURIES [None]
  - PAIN [None]
  - SOCIAL PROBLEM [None]
  - ULCER [None]
